FAERS Safety Report 7537031-9 (Version None)
Quarter: 2011Q2

REPORT INFORMATION
  Report Type: 
  Country: None (occurrence: None)
  Receive Date: 20110609
  Receipt Date: 20110527
  Transmission Date: 20111010
  Serious: Yes (Other)
  Sender: FDA-Public Use
  Company Number: PHHY2011US46983

PATIENT
  Sex: Female

DRUGS (13)
  1. NAPROXEN [Concomitant]
     Indication: PAIN
     Dosage: 500 MG, UNK
  2. ENALAPRIL MALEATE [Concomitant]
     Dosage: 2 DF, 20 MG
  3. VITAMIN D [Concomitant]
     Dosage: 2000 IU, UNK
  4. HUMALOG [Concomitant]
     Dosage: 6-8 UNITS EVERYTIME
  5. LANTUS [Concomitant]
     Dosage: 4 U BEFORE BED
  6. ASPIRIN [Concomitant]
     Dosage: 81 MG, UNK
  7. SIMVASTATIN [Concomitant]
     Indication: BLOOD CHOLESTEROL ABNORMAL
     Dosage: 40 MG, UNK
  8. TEMAZEPAM [Concomitant]
  9. AMLODIPINE [Concomitant]
     Dosage: 2 DF, 5 MG
  10. ZOLOFT [Concomitant]
     Dosage: 100 MG IN MORNING AND 50 MG IN NIGHT
  11. TEKTURNA [Suspect]
     Dosage: 1 DF, 150 MG
     Dates: start: 20090101
  12. AVAPRO [Concomitant]
     Dosage: 300 MG, UNK
  13. LORAZEPAM [Concomitant]
     Dosage: 2 DF, 5 MG

REACTIONS (2)
  - RETINAL DETACHMENT [None]
  - MACULAR DEGENERATION [None]
